FAERS Safety Report 4337392-8 (Version None)
Quarter: 2004Q2

REPORT INFORMATION
  Report Type: 
  Country: None (occurrence: None)
  Receive Date: 20040412
  Receipt Date: 20040412
  Transmission Date: 20050107
  Serious: Yes (Disabling)
  Sender: FDA-Public Use
  Company Number: None

PATIENT
  Age: 42 Year
  Sex: Female

DRUGS (1)
  1. MACROBID [Suspect]
     Indication: CYSTITIS
     Dosage: 1 CAPSULE TWICE DAILY ORAL
     Route: 048
     Dates: start: 19981110, end: 19981117

REACTIONS (25)
  - ARTHRALGIA [None]
  - ASTHENIA [None]
  - CONTUSION [None]
  - DIPLOPIA [None]
  - DISTURBANCE IN ATTENTION [None]
  - EPISTAXIS [None]
  - FACE OEDEMA [None]
  - FATIGUE [None]
  - HEADACHE [None]
  - HYPOAESTHESIA [None]
  - MEMORY IMPAIRMENT [None]
  - MUSCLE SPASMS [None]
  - MUSCULOSKELETAL STIFFNESS [None]
  - NAUSEA [None]
  - NIGHT SWEATS [None]
  - OEDEMA PERIPHERAL [None]
  - PARAESTHESIA [None]
  - PETECHIAE [None]
  - SENSATION OF PRESSURE IN EAR [None]
  - SKIN BURNING SENSATION [None]
  - TINNITUS [None]
  - URINARY TRACT INFECTION [None]
  - VEIN PAIN [None]
  - VISION BLURRED [None]
  - WEIGHT DECREASED [None]
